FAERS Safety Report 4326438-9 (Version None)
Quarter: 2004Q1

REPORT INFORMATION
  Report Type: 
  Country: None (occurrence: None)
  Receive Date: 20040330
  Receipt Date: 20031225
  Transmission Date: 20041129
  Serious: Yes (Death, Hospitalization)
  Sender: FDA-Public Use
  Company Number: 200311600JP

PATIENT
  Age: 79 Year
  Sex: Female
  Weight: 28 kg

DRUGS (8)
  1. ARAVA [Suspect]
     Indication: RHEUMATOID ARTHRITIS
     Route: 048
     Dates: start: 20031119, end: 20040209
  2. MEDROL [Concomitant]
     Indication: RHEUMATOID ARTHRITIS
     Route: 048
     Dates: end: 20040209
  3. EPADEL [Concomitant]
     Indication: HYPERLIPIDAEMIA
     Route: 048
     Dates: end: 20040209
  4. PROMAC /JPN/ [Concomitant]
     Indication: GASTRITIS
     Route: 048
     Dates: end: 20031213
  5. BENET [Concomitant]
     Indication: OSTEOPOROSIS
     Route: 048
     Dates: end: 20031213
  6. AMLODIN [Concomitant]
     Indication: HYPERTENSION
     Route: 048
     Dates: end: 20031213
  7. ALTAT [Concomitant]
     Indication: GASTRITIS
     Route: 048
     Dates: end: 20031212
  8. ALTAT [Concomitant]
     Indication: REFLUX OESOPHAGITIS
     Route: 048
     Dates: end: 20031212

REACTIONS (30)
  - ACUTE RESPIRATORY DISTRESS SYNDROME [None]
  - ASPARTATE AMINOTRANSFERASE INCREASED [None]
  - BLOOD ALKALINE PHOSPHATASE INCREASED [None]
  - BLOOD CREATINE PHOSPHOKINASE INCREASED [None]
  - BLOOD LACTATE DEHYDROGENASE INCREASED [None]
  - BLOOD UREA INCREASED [None]
  - BRAIN NATRIURETIC PEPTIDE INCREASED [None]
  - CARDIAC FAILURE [None]
  - CARDIO-RESPIRATORY ARREST [None]
  - CHOLESTASIS [None]
  - CONJUNCTIVAL HAEMORRHAGE [None]
  - CYSTITIS [None]
  - DIARRHOEA [None]
  - DIZZINESS [None]
  - DYSPEPSIA [None]
  - DYSPHORIA [None]
  - EMPHYSEMA [None]
  - FEELING ABNORMAL [None]
  - HYPOXIA [None]
  - INTERSTITIAL LUNG DISEASE [None]
  - MYOCARDIAL INFARCTION [None]
  - MYOSITIS [None]
  - NASOPHARYNGITIS [None]
  - OSTEOPOROSIS [None]
  - PLATELET COUNT DECREASED [None]
  - PROTEIN URINE PRESENT [None]
  - RENAL DISORDER [None]
  - RESPIRATORY FAILURE [None]
  - SPINAL COMPRESSION FRACTURE [None]
  - UPPER RESPIRATORY TRACT INFECTION [None]
